FAERS Safety Report 12039433 (Version 1)
Quarter: 2016Q1

REPORT INFORMATION
  Report Type: Spontaneous
  Country: US (occurrence: None)
  Receive Date: 20160205
  Receipt Date: 20160205
  Transmission Date: 20160526
  Serious: Yes (Other)
  Sender: FDA-Public Use
  Company Number: None

PATIENT
  Age: 38 Year
  Sex: Female

DRUGS (1)
  1. GEODON [Suspect]
     Active Substance: ZIPRASIDONE HYDROCHLORIDE\ZIPRASIDONE MESYLATE
     Indication: BIPOLAR DISORDER
     Dosage: 80MG/2  QHS/BEDTIME  ORAL
     Route: 048

REACTIONS (4)
  - Accidental overdose [None]
  - Tremor [None]
  - Tardive dyskinesia [None]
  - Gait disturbance [None]

NARRATIVE: CASE EVENT DATE: 20160203
